FAERS Safety Report 8238067-5 (Version None)
Quarter: 2012Q1

REPORT INFORMATION
  Report Type: 
  Country: None (occurrence: None)
  Receive Date: 20120327
  Receipt Date: 20120319
  Transmission Date: 20120608
  Serious: Yes (Hospitalization)
  Sender: FDA-Public Use
  Company Number: US-GLAXOSMITHKLINE-A0971055A

PATIENT
  Age: 73 Year
  Sex: Male
  Weight: 73 kg

DRUGS (3)
  1. MELPHALAN HYDROCHLORIDE [Suspect]
     Indication: MULTIPLE MYELOMA
     Dosage: 12MG CYCLIC
     Route: 048
     Dates: start: 20110418
  2. VELCADE [Suspect]
     Indication: MULTIPLE MYELOMA
     Dosage: 1.3MGM2 WEEKLY
     Route: 042
     Dates: start: 20110418
  3. PREDNISONE TAB [Suspect]
     Indication: MULTIPLE MYELOMA
     Dosage: 100MG CYCLIC
     Route: 048
     Dates: start: 20110418

REACTIONS (4)
  - ABDOMINAL PAIN UPPER [None]
  - RENAL MASS [None]
  - RENAL DISORDER [None]
  - FLUID OVERLOAD [None]
